FAERS Safety Report 20476549 (Version 1)
Quarter: 2022Q1

REPORT INFORMATION
  Report Type: Spontaneous
  Country: GB (occurrence: None)
  Receive Date: 20220215
  Receipt Date: 20220215
  Transmission Date: 20220423
  Serious: Yes (Other)
  Sender: FDA-Public Use
  Company Number: GB-Fresenius Kabi-FK202201735

PATIENT
  Age: 45 Year
  Sex: Male

DRUGS (8)
  1. LEVOFLOXACIN [Suspect]
     Active Substance: LEVOFLOXACIN
     Indication: Cystic fibrosis
     Dosage: NEBULISED LEVOFLOXACIN
     Route: 065
  2. AZITHROMYCIN [Suspect]
     Active Substance: AZITHROMYCIN
     Indication: Cystic fibrosis
     Route: 065
  3. VITAMINS NOS [Suspect]
     Active Substance: VITAMINS
     Indication: Cystic fibrosis
     Dosage: FAT-SOLUBLE VITAMINS
     Route: 065
  4. CETIRIZINE [Suspect]
     Active Substance: CETIRIZINE HYDROCHLORIDE
     Indication: Cystic fibrosis
     Route: 065
  5. UNSPECIFIED INGREDIENT [Suspect]
     Active Substance: UNSPECIFIED INGREDIENT
     Indication: Cystic fibrosis
     Dosage: INHALERS OF UNSPECIFIED STEROIDS AND BRONCHODILATORS
     Route: 065
  6. INSULIN NOS [Suspect]
     Active Substance: INSULIN NOS
     Indication: Cystic fibrosis
     Route: 065
  7. LANSOPRAZOLE [Suspect]
     Active Substance: LANSOPRAZOLE
     Indication: Cystic fibrosis
     Route: 065
  8. DORNASE ALFA [Suspect]
     Active Substance: DORNASE ALFA
     Indication: Cystic fibrosis
     Dosage: DORNASE-ALFA [PULMOZYME]
     Route: 065

REACTIONS (3)
  - Hepatic necrosis [Recovered/Resolved]
  - Condition aggravated [Not Recovered/Not Resolved]
  - Transaminases increased [Not Recovered/Not Resolved]
